FAERS Safety Report 22359297 (Version 1)
Quarter: 2023Q2

REPORT INFORMATION
  Report Type: Spontaneous
  Country: DE (occurrence: DE)
  Receive Date: 20230524
  Receipt Date: 20230524
  Transmission Date: 20230722
  Serious: Yes (Other)
  Sender: FDA-Public Use
  Company Number: DE-AMK-264075

PATIENT

DRUGS (1)
  1. NUCALA [Suspect]
     Active Substance: MEPOLIZUMAB
     Indication: Nasal polyps
     Dosage: UNK
     Route: 065
     Dates: start: 20230205

REACTIONS (1)
  - Penile haemorrhage [Recovered/Resolved]

NARRATIVE: CASE EVENT DATE: 20230219
